FAERS Safety Report 8481064-5 (Version None)
Quarter: 2012Q3

REPORT INFORMATION
  Report Type: 
  Country: None (occurrence: None)
  Receive Date: 20120702
  Receipt Date: 20120622
  Transmission Date: 20120928
  Serious: Yes (Other)
  Sender: FDA-Public Use
  Company Number: PHFR2012GB003664

PATIENT
  Age: 85 Year
  Sex: Female

DRUGS (9)
  1. IOPIDINE [Suspect]
     Dosage: 1 DF, TID
  2. VOLTAREN [Concomitant]
     Route: 030
  3. METOCLOPRAMIDE [Concomitant]
     Dosage: 10 MG, UNK
     Route: 030
  4. ACETAZOLAMIDE [Suspect]
     Dosage: 500 MG, UNK
  5. ACETAZOLAMIDE [Suspect]
     Dosage: 250 MG, QID
  6. ACETAZOLAMIDE [Suspect]
     Dosage: 125 MG, QID
  7. PRED FORTE [Suspect]
     Dosage: 1 DF, QID
  8. PILOCARPINE [Suspect]
  9. AZOPT [Suspect]
     Dosage: 1 DF, TID

REACTIONS (1)
  - INTRAOCULAR PRESSURE INCREASED [None]
